FAERS Safety Report 4618268-5 (Version None)
Quarter: 2005Q2

REPORT INFORMATION
  Report Type: 
  Country: None (occurrence: None)
  Receive Date: 20050316
  Receipt Date: 20041124
  Transmission Date: 20051028
  Serious: Yes (Hospitalization)
  Sender: FDA-Public Use
  Company Number: S04-USA-07563-01

PATIENT
  Age: 16 Year
  Sex: Female

DRUGS (4)
  1. LEXAPRO [Suspect]
     Indication: ANXIETY
     Dosage: 10 MG QD PO
     Route: 048
     Dates: start: 20040701, end: 20040715
  2. LEXAPRO [Suspect]
     Indication: DEPRESSION
     Dosage: 10 MG QD PO
     Route: 048
     Dates: start: 20040701, end: 20040715
  3. IBUPROFEN [Suspect]
     Indication: MIGRAINE
     Dates: start: 20040803, end: 20040804
  4. CONCERTA [Concomitant]

REACTIONS (6)
  - ANXIETY [None]
  - INTENTIONAL MISUSE [None]
  - MIGRAINE [None]
  - OVERDOSE [None]
  - PSYCHIATRIC SYMPTOM [None]
  - SUICIDE ATTEMPT [None]
